FAERS Safety Report 8598437-2 (Version None)
Quarter: 2012Q3

REPORT INFORMATION
  Report Type: 
  Country: None (occurrence: None)
  Receive Date: 20120816
  Receipt Date: 20120802
  Transmission Date: 20120928
  Serious: Yes (Life-Threatening, Hospitalization)
  Sender: FDA-Public Use
  Company Number: US-ROCHE-1080622

PATIENT
  Age: 48 Year
  Sex: Male
  Weight: 80 kg

DRUGS (15)
  1. PREDNISONE TAB [Suspect]
     Route: 048
     Dates: start: 20120108, end: 20120128
  2. HUMALOG [Concomitant]
     Dosage: CC
     Route: 058
  3. PREDNISONE TAB [Suspect]
     Indication: KIDNEY TRANSPLANT REJECTION
  4. AMLODIPINE [Concomitant]
     Route: 048
  5. CELLCEPT [Suspect]
     Indication: RENAL TRANSPLANT
     Route: 048
     Dates: start: 20100214
  6. LANTUS [Concomitant]
     Dosage: QHS
     Route: 058
     Dates: start: 20110817
  7. ASPIRIN [Concomitant]
     Route: 048
  8. MOXIFLOXACIN [Concomitant]
  9. CELLCEPT [Suspect]
     Route: 048
  10. PREDNISONE TAB [Suspect]
     Dates: start: 20110818
  11. SIROLIMUS [Suspect]
     Indication: PROPHYLAXIS AGAINST TRANSPLANT REJECTION
     Route: 048
     Dates: start: 20100625, end: 20120131
  12. PANTOPRAZOLE [Concomitant]
     Route: 048
  13. AMPHOTERICIN B [Suspect]
     Indication: PNEUMONIA CRYPTOCOCCAL
     Route: 042
     Dates: start: 20120108, end: 20120128
  14. LANTUS [Concomitant]
     Dosage: AT BED TIME
     Route: 058
     Dates: start: 20120205
  15. CELLCEPT [Suspect]
     Route: 048
     Dates: start: 20120131

REACTIONS (2)
  - ANAPHYLACTIC REACTION [None]
  - PNEUMONIA CRYPTOCOCCAL [None]
